FAERS Safety Report 5612008-9 (Version None)
Quarter: 2008Q1

REPORT INFORMATION
  Report Type: 
  Country: None (occurrence: None)
  Receive Date: 20080129
  Receipt Date: 20080129
  Transmission Date: 20080703
  Serious: Yes (Disabling)
  Sender: FDA-Public Use
  Company Number: None

PATIENT
  Sex: Male
  Weight: 99.7913 kg

DRUGS (1)
  1. LYRICA [Suspect]
     Indication: NEUROPATHY PERIPHERAL
     Dosage: 75MG  BID  PO
     Route: 048
     Dates: start: 20071211, end: 20080103

REACTIONS (7)
  - ANXIETY [None]
  - LOCAL SWELLING [None]
  - OEDEMA PERIPHERAL [None]
  - PARANOIA [None]
  - RASH GENERALISED [None]
  - SWELLING FACE [None]
  - VASCULITIS [None]
